FAERS Safety Report 26180506 (Version 1)
Quarter: 2025Q4

REPORT INFORMATION
  Report Type: Report from Study
  Country: US (occurrence: US)
  Receive Date: 20251219
  Receipt Date: 20251219
  Transmission Date: 20260117
  Serious: No
  Sender: AGIOS PHARMACEUTICALS
  Company Number: US-AGIOS-2512US04598

PATIENT
  Age: 61 Year
  Sex: Male

DRUGS (3)
  1. MITAPIVAT [Suspect]
     Active Substance: MITAPIVAT
     Indication: Pyruvate kinase deficiency anaemia
     Dosage: 20 MILLIGRAM, BID
     Route: 048
     Dates: start: 20251022
  2. MITAPIVAT [Suspect]
     Active Substance: MITAPIVAT
     Dosage: UNK
     Dates: start: 20220923, end: 20241231
  3. EXJADE [Concomitant]
     Active Substance: DEFERASIROX
     Indication: Iron overload
     Route: 065

REACTIONS (5)
  - Product dose omission issue [Recovering/Resolving]
  - Nasopharyngitis [Recovering/Resolving]
  - Fatigue [Recovering/Resolving]
  - Malaise [Recovering/Resolving]
  - Haemoglobin decreased [Recovering/Resolving]

NARRATIVE: CASE EVENT DATE: 20251121
